FAERS Safety Report 17543842 (Version 2)
Quarter: 2024Q3

REPORT INFORMATION
  Report Type: Spontaneous
  Country: IT (occurrence: IT)
  Receive Date: 20200316
  Receipt Date: 20240708
  Transmission Date: 20241016
  Serious: Yes (Hospitalization, Other)
  Sender: AUROBINDO
  Company Number: IT-002147023-NVSC2020IT054410

PATIENT
  Age: 63 Year
  Sex: Female

DRUGS (11)
  1. CIPROFLOXACIN [Suspect]
     Active Substance: CIPROFLOXACIN
     Indication: Product used for unknown indication
     Dosage: UNK (MAX 250 CRTS)
     Route: 065
     Dates: start: 20191122, end: 20191206
  2. VAXIGRIP [Suspect]
     Active Substance: INFLUENZA VIRUS VACCINE
     Indication: Product used for unknown indication
     Dosage: 1 DOSAGE FORM (PRE-FILLED SYRINGE)
     Route: 065
     Dates: start: 20191121, end: 20191121
  3. ASPIRIN [Concomitant]
     Active Substance: ASPIRIN
     Indication: Product used for unknown indication
     Dosage: UNK
     Route: 065
  4. BECLOMETHASONE DIPROPIONATE\FORMOTEROL FUMARATE [Concomitant]
     Active Substance: BECLOMETHASONE DIPROPIONATE\FORMOTEROL FUMARATE
     Indication: Product used for unknown indication
     Dosage: 1 DOSAGE FORM (100/6 UG)
     Route: 065
  5. LANSOPRAZOLE [Concomitant]
     Active Substance: LANSOPRAZOLE
     Indication: Product used for unknown indication
     Dosage: UNK
     Route: 065
  6. LEVOFLOXACIN [Concomitant]
     Active Substance: LEVOFLOXACIN
     Indication: Product used for unknown indication
     Dosage: 1125 MILLIGRAM
     Route: 065
     Dates: start: 20191208, end: 20191211
  7. BISOPROLOL [Concomitant]
     Active Substance: BISOPROLOL\BISOPROLOL FUMARATE
     Indication: Product used for unknown indication
     Dosage: 1.25 MILLIGRAM
     Route: 065
  8. VENTOLIN [Concomitant]
     Active Substance: ALBUTEROL SULFATE
     Indication: Product used for unknown indication
     Dosage: 100 MICROGRAM
     Route: 065
  9. CEFDITOREN PIVOXIL [Concomitant]
     Active Substance: CEFDITOREN PIVOXIL
     Indication: Product used for unknown indication
     Dosage: 400 MILLIGRAM
     Route: 065
     Dates: start: 20191208, end: 20191211
  10. ATORVASTATIN [Concomitant]
     Active Substance: ATORVASTATIN
     Indication: Product used for unknown indication
     Dosage: 10 MILLIGRAM
     Route: 065
  11. MODURETIC 5-50 [Concomitant]
     Active Substance: AMILORIDE HYDROCHLORIDE\HYDROCHLOROTHIAZIDE
     Indication: Product used for unknown indication
     Dosage: 1 DOSAGE FORM (5 MG PLUS 50 MG)
     Route: 065

REACTIONS (6)
  - Drug reaction with eosinophilia and systemic symptoms [Recovering/Resolving]
  - Eosinophilia [Recovering/Resolving]
  - Rash [Recovering/Resolving]
  - Lymphadenopathy [Recovering/Resolving]
  - Pyrexia [Recovering/Resolving]
  - Asthma [Recovering/Resolving]

NARRATIVE: CASE EVENT DATE: 20191208
